FAERS Safety Report 17231235 (Version 2)
Quarter: 2020Q1

REPORT INFORMATION
  Report Type: Spontaneous
  Country: US (occurrence: US)
  Receive Date: 20200103
  Receipt Date: 20200117
  Transmission Date: 20200409
  Serious: No
  Sender: FDA-Public Use
  Company Number: US-PFIZER INC-2019562372

PATIENT
  Age: 46 Year
  Sex: Female
  Weight: 168 kg

DRUGS (2)
  1. DESVENLAFAXINE SUCCINATE MONOHYDRATE [Suspect]
     Active Substance: DESVENLAFAXINE SUCCINATE
     Indication: DEPRESSION
     Dosage: UNK
  2. DESVENLAFAXINE SUCCINATE MONOHYDRATE [Suspect]
     Active Substance: DESVENLAFAXINE SUCCINATE
     Dosage: UNK, 3X/DAY (BY THE THIRD WEEK SHE WAS TAKING TUMS 3 TIMES A DAY)

REACTIONS (5)
  - Dyspepsia [Recovered/Resolved]
  - Headache [Recovered/Resolved]
  - Hunger [Recovered/Resolved]
  - Drug ineffective [Unknown]
  - Increased appetite [Recovered/Resolved]
